FAERS Safety Report 10304279 (Version 1)
Quarter: 2014Q3

REPORT INFORMATION
  Report Type: Spontaneous
  Country: GB (occurrence: GB)
  Receive Date: 20140714
  Receipt Date: 20140714
  Transmission Date: 20150326
  Serious: Yes (Hospitalization)
  Sender: FDA-Public Use
  Company Number: GB-BRACCO-000904

PATIENT
  Age: 47 Year
  Sex: Male

DRUGS (1)
  1. BARIUM [Suspect]
     Active Substance: BARIUM
     Indication: X-RAY WITH CONTRAST
     Route: 048

REACTIONS (4)
  - Dehydration [None]
  - Barium impaction [None]
  - Dysphagia [Recovered/Resolved]
  - Oesophageal achalasia [None]
